FAERS Safety Report 4493416-9 (Version None)
Quarter: 2004Q4

REPORT INFORMATION
  Report Type: 
  Country: None (occurrence: None)
  Receive Date: 20041102
  Receipt Date: 20041027
  Transmission Date: 20050328
  Serious: Yes (Life-Threatening)
  Sender: FDA-Public Use
  Company Number: A0531537A

PATIENT
  Age: 28 Year
  Sex: Male

DRUGS (4)
  1. WELLBUTRIN SR [Suspect]
     Indication: DEPRESSION
  2. WELLBUTRIN XL [Suspect]
     Indication: DEPRESSION
     Dosage: ORAL
     Route: 048
  3. CELECOXIB [Concomitant]
  4. MIRTAZAPINE [Concomitant]

REACTIONS (1)
  - DRUG INEFFECTIVE [None]
